FAERS Safety Report 20748742 (Version 1)
Quarter: 2022Q2

REPORT INFORMATION
  Report Type: Spontaneous
  Country: TZ (occurrence: TZ)
  Receive Date: 20220426
  Receipt Date: 20220426
  Transmission Date: 20220721
  Serious: Yes (Other)
  Sender: FDA-Public Use
  Company Number: TZ-LUPIN PHARMACEUTICALS INC.-2022-06088

PATIENT
  Age: 68 Year
  Sex: Female

DRUGS (9)
  1. AZITHROMYCIN [Suspect]
     Active Substance: AZITHROMYCIN
     Indication: COVID-19 pneumonia
     Dosage: 500 MG, QD
     Route: 048
  2. CEFTRIAXONE [Suspect]
     Active Substance: CEFTRIAXONE
     Indication: COVID-19 pneumonia
     Dosage: 1 GRAM, QD
     Route: 065
  3. IVERMECTIN [Suspect]
     Active Substance: IVERMECTIN
     Indication: COVID-19 pneumonia
     Dosage: 12 MG, QD
     Route: 048
  4. DEXAMETHASONE [Suspect]
     Active Substance: DEXAMETHASONE
     Indication: COVID-19 pneumonia
     Dosage: 8 MG, QD
     Route: 042
  5. COLCHICINE [Suspect]
     Active Substance: COLCHICINE
     Indication: COVID-19 pneumonia
     Dosage: 0.5 MG, QD
     Route: 048
  6. ENOXAPARIN [Suspect]
     Active Substance: ENOXAPARIN
     Indication: COVID-19 pneumonia
     Dosage: 40 MG, QD
     Route: 058
  7. VITAMIN D [Suspect]
     Active Substance: VITAMIN D NOS
     Indication: COVID-19 pneumonia
     Dosage: 5000 INTERNATIONAL UNIT, QD
     Route: 048
  8. VITAMIN C [Suspect]
     Active Substance: ASCORBIC ACID
     Indication: COVID-19 pneumonia
     Dosage: 1 GRAM, QD
     Route: 048
  9. ZINC [Suspect]
     Active Substance: ZINC
     Indication: COVID-19 pneumonia
     Dosage: 40 MG, QD
     Route: 048

REACTIONS (2)
  - Mixed deafness [Recovered/Resolved]
  - Off label use [Unknown]
